FAERS Safety Report 20198599 (Version 2)
Quarter: 2022Q4

REPORT INFORMATION
  Report Type: Spontaneous
  Country: US (occurrence: US)
  Receive Date: 20211217
  Receipt Date: 20221214
  Transmission Date: 20230112
  Serious: No
  Sender: FDA-Public Use
  Company Number: US-ALLERGAN-2139158US

PATIENT
  Age: 25 Year
  Sex: Female
  Weight: 45.3 kg

DRUGS (5)
  1. DALVANCE [Suspect]
     Active Substance: DALBAVANCIN
     Indication: Cellulitis
     Dosage: 1500 MG, SINGLE
     Route: 042
     Dates: start: 20211105, end: 20211105
  2. NEXPLANON [Concomitant]
     Active Substance: ETONOGESTREL
  3. IBUPROFEN [Concomitant]
     Active Substance: IBUPROFEN
     Dosage: 200 MG, PRN
  4. VITAMINS NOS [Concomitant]
     Active Substance: VITAMINS
     Dosage: 1 DF, QD
  5. PROBIOTICS NOS [Concomitant]
     Active Substance: PROBIOTICS NOS
     Dosage: 1 DF, QD

REACTIONS (4)
  - Rash [Recovered/Resolved]
  - Diarrhoea [Recovered/Resolved]
  - Nausea [Recovered/Resolved]
  - Vomiting [Recovered/Resolved]

NARRATIVE: CASE EVENT DATE: 20211114
